FAERS Safety Report 13389691 (Version 1)
Quarter: 2017Q1

REPORT INFORMATION
  Report Type: Spontaneous
  Country: US (occurrence: US)
  Receive Date: 20170330
  Receipt Date: 20170330
  Transmission Date: 20170429
  Serious: Yes (Other)
  Sender: FDA-Public Use
  Company Number: US-ELI_LILLY_AND_COMPANY-US201608003939

PATIENT
  Age: 29 Year
  Sex: Female

DRUGS (3)
  1. CYMBALTA [Suspect]
     Active Substance: DULOXETINE HYDROCHLORIDE
     Dosage: 60 MG, QD
     Route: 048
     Dates: start: 20130916
  2. CYMBALTA [Suspect]
     Active Substance: DULOXETINE HYDROCHLORIDE
     Indication: PRODUCT USED FOR UNKNOWN INDICATION
     Dosage: UNK, UNKNOWN
     Route: 065
  3. CYMBALTA [Suspect]
     Active Substance: DULOXETINE HYDROCHLORIDE
     Dosage: 30 MG, OTHER
     Route: 048
     Dates: start: 20120910

REACTIONS (26)
  - Drug withdrawal syndrome [Unknown]
  - Vision blurred [Unknown]
  - Bipolar disorder [Unknown]
  - Depressed mood [Unknown]
  - Confusional state [Unknown]
  - Affect lability [Unknown]
  - Stress [Unknown]
  - Vertigo [Unknown]
  - Paraesthesia [Unknown]
  - Seizure [Unknown]
  - Migraine [Unknown]
  - Dizziness [Unknown]
  - Nausea [Unknown]
  - Panic attack [Unknown]
  - Lethargy [Unknown]
  - Memory impairment [Unknown]
  - Aphasia [Unknown]
  - Anxiety [Unknown]
  - Agitation [Unknown]
  - Fatigue [Unknown]
  - Sensory disturbance [Unknown]
  - Tremor [Unknown]
  - Headache [Unknown]
  - Irritability [Unknown]
  - Disturbance in attention [Unknown]
  - Vomiting [Unknown]

NARRATIVE: CASE EVENT DATE: 201201
